FAERS Safety Report 10493851 (Version 1)
Quarter: 2014Q4

REPORT INFORMATION
  Report Type: Spontaneous
  Country: ID (occurrence: ID)
  Receive Date: 20141003
  Receipt Date: 20141003
  Transmission Date: 20150528
  Serious: Yes (Other)
  Sender: FDA-Public Use
  Company Number: ID-ROCHE-1469022

PATIENT

DRUGS (2)
  1. BONVIVA [Suspect]
     Active Substance: IBANDRONATE SODIUM
     Indication: SPINAL FRACTURE
     Route: 065
  2. BONVIVA [Suspect]
     Active Substance: IBANDRONATE SODIUM
     Indication: HIP FRACTURE

REACTIONS (1)
  - Oesophageal haemorrhage [Unknown]
